FAERS Safety Report 14305700 (Version 3)
Quarter: 2018Q3

REPORT INFORMATION
  Report Type: Spontaneous
  Country: DE (occurrence: DE)
  Receive Date: 20171219
  Receipt Date: 20180710
  Transmission Date: 20181010
  Serious: Yes (Hospitalization, Other)
  Sender: FDA-Public Use
  Company Number: PHHY2017DE189486

PATIENT
  Age: 54 Year
  Sex: Female

DRUGS (2)
  1. OMEPRAZOLE. [Suspect]
     Active Substance: OMEPRAZOLE
     Indication: GASTROOESOPHAGEAL REFLUX DISEASE
     Dosage: 1 DF, IN SUMMER OF 2014, TOOK 1 TABLET
     Route: 048
     Dates: start: 2014
  2. AZITHROMYCIN ANHYDROUS. [Concomitant]
     Active Substance: AZITHROMYCIN ANHYDROUS
     Indication: BRONCHITIS
     Dosage: UNK
     Route: 065

REACTIONS (6)
  - Vomiting [Unknown]
  - Hypotension [Unknown]
  - Flushing [Unknown]
  - Type I hypersensitivity [Unknown]
  - Abdominal pain [Unknown]
  - Diarrhoea [Unknown]
